FAERS Safety Report 10089816 (Version 2)
Quarter: 2014Q2

REPORT INFORMATION
  Report Type: Spontaneous
  Country: IT (occurrence: None)
  Receive Date: 20140417
  Receipt Date: 20140428
  Transmission Date: 20141212
  Serious: Yes (Other)
  Sender: FDA-Public Use
  Company Number: AUR-APL-2014-04480

PATIENT
  Age: 65 Year
  Sex: Male
  Weight: 82 kg

DRUGS (8)
  1. METFORMIN [Suspect]
     Indication: DIABETES MELLITUS
     Dosage: (400 MG,1 D)
     Route: 048
     Dates: end: 20140317
  2. CAPRELSA (VANDETANIB) [Suspect]
     Indication: MEDULLARY THYROID CANCER
     Dosage: (300 MG,1 D)
     Route: 048
     Dates: start: 20140128, end: 20140317
  3. TRIATEC (PANADEINE CO) [Concomitant]
  4. GLUCOBAY (ACARBOSE) [Concomitant]
  5. IPSTYL (LANRETOTIDE ACETATE) [Concomitant]
  6. TIROSINT (LEVOTHYROXINE SODIUM) [Concomitant]
  7. LANTUS (INSULIN GLARGINE) [Concomitant]
  8. GLIBOMET (GLIBOMET) [Concomitant]

REACTIONS (1)
  - Renal failure [None]
